FAERS Safety Report 19510786 (Version 1)
Quarter: 2021Q3

REPORT INFORMATION
  Report Type: Spontaneous
  Country: DE (occurrence: DE)
  Receive Date: 20210709
  Receipt Date: 20210709
  Transmission Date: 20211014
  Serious: Yes (Other)
  Sender: FDA-Public Use
  Company Number: DE-AMGEN-DEUSP2021103740

PATIENT
  Age: 65 Year
  Sex: Female
  Weight: 63 kg

DRUGS (4)
  1. OXYCODONHYDROCHLORID PUREN [Concomitant]
     Dosage: 3 DOSAGE FORM, QD
     Dates: start: 202011
  2. FULVESTRANT MYLAN [Suspect]
     Active Substance: FULVESTRANT
     Indication: METASTASES TO BONE
     Dosage: ONE SYRINGE, Q28D
     Route: 065
     Dates: start: 20210128
  3. XGEVA [Suspect]
     Active Substance: DENOSUMAB
     Indication: METASTASES TO LIVER
     Dosage: UNK, Q28D (ONE SYRINGE)
     Route: 065
     Dates: start: 20210128
  4. NOVAMINSULFON [Concomitant]
     Active Substance: METAMIZOLE
     Dosage: 4 DOSAGE FORM, QD
     Dates: start: 202011

REACTIONS (9)
  - Back pain [Unknown]
  - Gait disturbance [Unknown]
  - Paraesthesia [Unknown]
  - Arthralgia [Unknown]
  - Pain [Unknown]
  - Depressed mood [Unknown]
  - Condition aggravated [Unknown]
  - Pain in extremity [Unknown]
  - Drug ineffective [Unknown]

NARRATIVE: CASE EVENT DATE: 2021
